FAERS Safety Report 25069060 (Version 2)
Quarter: 2025Q3

REPORT INFORMATION
  Report Type: Spontaneous
  Country: CN (occurrence: CN)
  Receive Date: 20250312
  Receipt Date: 20250701
  Transmission Date: 20251021
  Serious: Yes (Death, Hospitalization)
  Sender: PFIZER
  Company Number: CN-PFIZER INC-PV202500028428

PATIENT
  Age: 58 Year
  Sex: Male

DRUGS (2)
  1. XYNTHA [Suspect]
     Active Substance: MOROCTOCOG ALFA
     Dosage: 1000 IU, ONCE A WEEK
     Route: 042
     Dates: start: 20241214
  2. ANTIHEMOPHILIC FACTOR HUMAN [Suspect]
     Active Substance: ANTIHEMOPHILIC FACTOR HUMAN

REACTIONS (2)
  - Internal haemorrhage [Fatal]
  - Anti factor VIII antibody increased [Not Recovered/Not Resolved]

NARRATIVE: CASE EVENT DATE: 20250101
